FAERS Safety Report 4875395-5 (Version None)
Quarter: 2006Q1

REPORT INFORMATION
  Report Type: 
  Country: None (occurrence: None)
  Receive Date: 20060109
  Receipt Date: 20050907
  Transmission Date: 20060701
  Serious: Yes (Hospitalization, Other)
  Sender: FDA-Public Use
  Company Number: US-MERCK-0509USA00881

PATIENT
  Age: 69 Year
  Sex: Male
  Weight: 83 kg

DRUGS (29)
  1. VIOXX [Suspect]
     Indication: PROCEDURAL PAIN
     Route: 048
     Dates: start: 20001101, end: 20010401
  2. VIOXX [Suspect]
     Route: 048
     Dates: start: 20010401, end: 20010101
  3. VIOXX [Suspect]
     Route: 048
     Dates: start: 20011204
  4. VIOXX [Suspect]
     Route: 048
     Dates: start: 20030501
  5. VIOXX [Suspect]
     Route: 048
     Dates: start: 20040801
  6. VIOXX [Suspect]
     Indication: ARTHRITIS
     Route: 048
     Dates: start: 20001101, end: 20010401
  7. VIOXX [Suspect]
     Route: 048
     Dates: start: 20010401, end: 20010101
  8. VIOXX [Suspect]
     Route: 048
     Dates: start: 20011204
  9. VIOXX [Suspect]
     Route: 048
     Dates: start: 20030501
  10. VIOXX [Suspect]
     Route: 048
     Dates: start: 20040801
  11. CARDURA [Concomitant]
     Indication: HYPERTENSION
     Route: 065
     Dates: start: 20001101, end: 20021219
  12. GUAIFED [Concomitant]
     Route: 065
  13. HYDROCHLOROTHIAZIDE [Concomitant]
     Indication: HYPERTENSION
     Route: 065
  14. LOTENSIN [Concomitant]
     Indication: HYPERTENSION
     Route: 065
     Dates: start: 20000613, end: 20040212
  15. IMDUR [Concomitant]
     Indication: CARDIAC DISORDER
     Route: 065
  16. HUMULIN [Concomitant]
     Indication: DIABETES MELLITUS
     Route: 065
  17. TOPROL-XL [Concomitant]
     Route: 065
  18. NASONEX [Concomitant]
     Route: 065
  19. [THERAPY UNSPECIFIED] [Concomitant]
     Route: 065
  20. OMEPRAZOLE [Concomitant]
     Route: 065
  21. DOXYCYCLINE [Concomitant]
     Route: 065
  22. CHLOREX A [Concomitant]
     Route: 065
  23. HUMALOG [Concomitant]
     Route: 065
  24. LEVAQUIN [Concomitant]
     Route: 065
  25. MUCINEX [Concomitant]
     Route: 065
  26. METOLAZONE [Concomitant]
     Route: 065
  27. NITROQUICK [Concomitant]
     Route: 065
  28. ACETAMINOPHEN AND HYDROCODONE BITARTRATE [Concomitant]
     Indication: PAIN
     Route: 065
  29. ASPIRIN [Concomitant]
     Route: 065

REACTIONS (14)
  - ANGINA UNSTABLE [None]
  - ARTERIOSCLEROSIS CORONARY ARTERY [None]
  - BRONCHITIS [None]
  - CHEST PAIN [None]
  - CORONARY ARTERY DISEASE [None]
  - EUSTACHIAN TUBE DYSFUNCTION [None]
  - GASTROOESOPHAGEAL REFLUX DISEASE [None]
  - HYPERLIPIDAEMIA [None]
  - ISCHAEMIC CARDIOMYOPATHY [None]
  - MICROALBUMINURIA [None]
  - MYOCARDIAL INFARCTION [None]
  - NON-CARDIAC CHEST PAIN [None]
  - PERIPHERAL VASCULAR DISORDER [None]
  - SLEEP APNOEA SYNDROME [None]
